FAERS Safety Report 9502493 (Version 1)
Quarter: 2013Q3

REPORT INFORMATION
  Report Type: Spontaneous
  Country: CN (occurrence: CN)
  Receive Date: 20130906
  Receipt Date: 20130906
  Transmission Date: 20140515
  Serious: Yes (Hospitalization)
  Sender: FDA-Public Use
  Company Number: CN-ROCHE-1271224

PATIENT
  Age: 34 Year
  Sex: Male
  Weight: 55 kg

DRUGS (3)
  1. XELODA [Suspect]
     Indication: GASTRIC CANCER
     Route: 048
     Dates: start: 20110902, end: 20111223
  2. CELEBREX [Suspect]
     Indication: PAIN
     Route: 065
     Dates: start: 20111230, end: 20111231
  3. ELOXATIN [Suspect]
     Indication: GASTRIC CANCER
     Route: 042
     Dates: start: 20110902, end: 201112

REACTIONS (1)
  - Metastases to meninges [Not Recovered/Not Resolved]
